FAERS Safety Report 6114534-5 (Version None)
Quarter: 2009Q1

REPORT INFORMATION
  Report Type: 
  Country: None (occurrence: None)
  Receive Date: 20090313
  Receipt Date: 20090306
  Transmission Date: 20090719
  Serious: Yes (Hospitalization)
  Sender: FDA-Public Use
  Company Number: SE-AVENTIS-200815079GDDC

PATIENT
  Age: 67 Year
  Sex: Male
  Weight: 104.2 kg

DRUGS (10)
  1. GLIMEPIRIDE [Suspect]
     Indication: OVERWEIGHT
     Dosage: DOSE: TITRATED DOSE BETWEEN 1 MG AND 6 MG
     Route: 048
     Dates: start: 20080320, end: 20080521
  2. GLIMEPIRIDE [Suspect]
     Indication: TYPE 2 DIABETES MELLITUS
     Dosage: DOSE: TITRATED DOSE BETWEEN 1 MG AND 6 MG
     Route: 048
     Dates: start: 20080320, end: 20080521
  3. METFORMIN HCL [Concomitant]
     Indication: DIABETES MELLITUS
     Dates: start: 20070401, end: 20080406
  4. METFORMIN HCL [Concomitant]
     Dates: start: 20080506
  5. SIMVASTATIN [Concomitant]
     Indication: DYSLIPIDAEMIA
     Dates: start: 20070401
  6. ENALAPRIL [Concomitant]
     Indication: HYPERTENSION
     Dates: start: 20070401
  7. SELOKEN                            /00376902/ [Concomitant]
     Indication: HYPERTENSION
     Dates: start: 20070401
  8. TROMBYL [Concomitant]
     Indication: CARDIOVASCULAR EVENT PROPHYLAXIS
     Dates: start: 20070401
  9. IMPUGAN [Concomitant]
  10. GLYTRIN [Concomitant]

REACTIONS (5)
  - COLD SWEAT [None]
  - GLYCOSYLATED HAEMOGLOBIN INCREASED [None]
  - HYPERTENSION [None]
  - NAUSEA [None]
  - NYSTAGMUS [None]
